FAERS Safety Report 16590227 (Version 1)
Quarter: 2019Q3

REPORT INFORMATION
  Report Type: Spontaneous
  Country: GB (occurrence: GB)
  Receive Date: 20190717
  Receipt Date: 20190717
  Transmission Date: 20191004
  Serious: Yes (Hospitalization, Disabling)
  Sender: FDA-Public Use
  Company Number: None

PATIENT
  Age: 41 Year
  Sex: Male
  Weight: 82.55 kg

DRUGS (2)
  1. CINFAMAR [Suspect]
     Active Substance: DIMENHYDRINATE
     Indication: POOR QUALITY SLEEP
     Dosage: ?          QUANTITY:20 TABLET(S);?
     Route: 048
     Dates: start: 20190708, end: 20190710
  2. CINFAMAR [Suspect]
     Active Substance: DIMENHYDRINATE
     Indication: NAUSEA
     Dosage: ?          QUANTITY:20 TABLET(S);?
     Route: 048
     Dates: start: 20190708, end: 20190710

REACTIONS (5)
  - Nausea [None]
  - Seizure [None]
  - Urinary incontinence [None]
  - Anger [None]
  - Vomiting [None]

NARRATIVE: CASE EVENT DATE: 20190710
